FAERS Safety Report 7834960-3 (Version None)
Quarter: 2011Q4

REPORT INFORMATION
  Report Type: 
  Country: None (occurrence: None)
  Receive Date: 20111024
  Receipt Date: 20111010
  Transmission Date: 20120403
  Serious: Yes (Hospitalization)
  Sender: FDA-Public Use
  Company Number: US-SANOFI-AVENTIS-2011SA066105

PATIENT
  Age: 42 Year
  Sex: Female

DRUGS (1)
  1. RIFAMPIN [Suspect]
     Indication: TUBERCULIN TEST POSITIVE
     Route: 065

REACTIONS (7)
  - MUSCULOSKELETAL PAIN [None]
  - FATIGUE [None]
  - HYPOCALCAEMIA [None]
  - ABDOMINAL PAIN [None]
  - ELECTROCARDIOGRAM QT PROLONGED [None]
  - VITAMIN D DEFICIENCY [None]
  - ASTHENIA [None]
